FAERS Safety Report 13492257 (Version 5)
Quarter: 2017Q2

REPORT INFORMATION
  Report Type: Report from Study
  Country: US (occurrence: US)
  Receive Date: 20170427
  Receipt Date: 20170606
  Transmission Date: 20170830
  Serious: Yes (Hospitalization)
  Sender: FDA-Public Use
  Company Number: US-SEATTLE GENETICS-2017SGN00988

PATIENT
  Age: 78 Year
  Sex: Female
  Weight: 61.5 kg

DRUGS (2)
  1. BRENTUXIMAB VEDOTIN [Suspect]
     Active Substance: BRENTUXIMAB VEDOTIN
     Indication: DIFFUSE LARGE B-CELL LYMPHOMA
     Dosage: 1.2 MG/KG, Q21D
     Route: 042
     Dates: start: 20161017, end: 20170313
  2. LENALIDOMIDE [Suspect]
     Active Substance: LENALIDOMIDE
     Indication: DIFFUSE LARGE B-CELL LYMPHOMA
     Dosage: 20 MG, QCYCLE
     Route: 048
     Dates: start: 20161017, end: 20170403

REACTIONS (4)
  - Cough [Recovered/Resolved]
  - Diarrhoea [Recovered/Resolved]
  - Respiratory symptom [Recovered/Resolved]
  - Body temperature increased [Recovered/Resolved]

NARRATIVE: CASE EVENT DATE: 20170408
